FAERS Safety Report 24174802 (Version 4)
Quarter: 2025Q2

REPORT INFORMATION
  Report Type: Report from Study
  Country: GB (occurrence: GB)
  Receive Date: 20240805
  Receipt Date: 20250512
  Transmission Date: 20250717
  Serious: Yes (Hospitalization, Other)
  Sender: TAKEDA
  Company Number: GB-TAKEDA-2023TUS122020

PATIENT
  Age: 40 Year
  Sex: Female
  Weight: 97 kg

DRUGS (15)
  1. ADAMTS13, RECOMBINANT-KRHN [Suspect]
     Active Substance: ADAMTS13, RECOMBINANT-KRHN
     Indication: Prophylaxis
     Dosage: 34 INTERNATIONAL UNIT/KILOGRAM, 1/WEEK
     Dates: start: 202304
  2. ADAMTS13, RECOMBINANT-KRHN [Suspect]
     Active Substance: ADAMTS13, RECOMBINANT-KRHN
     Indication: Migraine
     Dosage: 41 INTERNATIONAL UNIT/KILOGRAM, 1/WEEK
     Dates: start: 20231207
  3. ADAMTS13, RECOMBINANT-KRHN [Suspect]
     Active Substance: ADAMTS13, RECOMBINANT-KRHN
     Indication: Congenital thrombotic thrombocytopenic purpura
     Dosage: 4006 INTERNATIONAL UNIT, 1/WEEK
  4. ADAMTS13, RECOMBINANT-KRHN [Suspect]
     Active Substance: ADAMTS13, RECOMBINANT-KRHN
     Dosage: 4006 INTERNATIONAL UNIT, 1/WEEK
  5. ADAMTS13, RECOMBINANT-KRHN [Suspect]
     Active Substance: ADAMTS13, RECOMBINANT-KRHN
     Dosage: 4006 INTERNATIONAL UNIT, 1/WEEK
  6. ADAMTS13, RECOMBINANT-KRHN [Suspect]
     Active Substance: ADAMTS13, RECOMBINANT-KRHN
     Dosage: 40 INTERNATIONAL UNIT/KILOGRAM, 1/WEEK
  7. ADAMTS13, RECOMBINANT-KRHN [Suspect]
     Active Substance: ADAMTS13, RECOMBINANT-KRHN
     Dosage: 3500 INTERNATIONAL UNIT, 1/WEEK
  8. LABETALOL [Concomitant]
     Active Substance: LABETALOL
     Indication: Hypertension
     Dosage: 300 MILLIGRAM, 3/WEEK
     Dates: start: 202311
  9. LABETALOL [Concomitant]
     Active Substance: LABETALOL
     Dosage: 300 MILLIGRAM, TID
     Dates: start: 202408
  10. METFORMIN [Concomitant]
     Active Substance: METFORMIN HYDROCHLORIDE
     Indication: Gestational diabetes
     Dosage: UNK UNK, 2/WEEK
  11. DALTEPARIN [Concomitant]
     Active Substance: DALTEPARIN
     Indication: Thrombosis prophylaxis
     Dosage: 7500 INTERNATIONAL UNIT, 1/WEEK
     Dates: start: 202401
  12. DALTEPARIN [Concomitant]
     Active Substance: DALTEPARIN
     Indication: Embolism venous
     Dosage: 7500 INTERNATIONAL UNIT, 1/WEEK
     Dates: start: 20250220
  13. ASPIRIN [Concomitant]
     Active Substance: ASPIRIN
     Indication: Embolism venous
     Dosage: 75 MILLIGRAM, QD
  14. ASPIRIN [Concomitant]
     Active Substance: ASPIRIN
     Indication: Thrombotic thrombocytopenic purpura
     Dosage: 150 MILLIGRAM, QD
     Dates: start: 20250220
  15. FOLIC ACID [Concomitant]
     Active Substance: FOLIC ACID
     Indication: Blood folate decreased
     Dosage: 5 MILLIGRAM, QD

REACTIONS (6)
  - Stillbirth [Recovered/Resolved]
  - Drug level abnormal [Unknown]
  - Meningitis viral [Recovering/Resolving]
  - Extra dose administered [Unknown]
  - Pregnancy [Unknown]
  - Migraine [Unknown]

NARRATIVE: CASE EVENT DATE: 20250429
